FAERS Safety Report 7937663-X (Version None)
Quarter: 2011Q4

REPORT INFORMATION
  Report Type: 
  Country: None (occurrence: None)
  Receive Date: 20111123
  Receipt Date: 20111116
  Transmission Date: 20120403
  Serious: Yes (Hospitalization)
  Sender: FDA-Public Use
  Company Number: PHHY2011AU68847

PATIENT
  Sex: Female

DRUGS (6)
  1. CHOLECALCIFEROL [Concomitant]
     Dosage: 25 UG, DAILY
     Route: 048
  2. PYRIDOXINE HCL [Concomitant]
     Dosage: 25 MG, DAILY
  3. TEMAZEPAM [Concomitant]
     Dosage: 20 MG, PRN
     Route: 048
  4. CLOZARIL [Suspect]
     Dosage: 250 MG
     Dates: start: 20110711, end: 20110728
  5. ZUCLOPENTHIXOL [Concomitant]
     Dosage: 20 MGS NOCTE
     Route: 048
  6. SEROQUEL [Concomitant]
     Dosage: 100 MG, NOCTE
     Route: 048

REACTIONS (4)
  - TROPONIN INCREASED [None]
  - CARDIAC DISORDER [None]
  - MYOCARDITIS [None]
  - BLOOD COUNT ABNORMAL [None]
